FAERS Safety Report 6132735-7 (Version None)
Quarter: 2009Q1

REPORT INFORMATION
  Report Type: 
  Country: None (occurrence: None)
  Receive Date: 20090324
  Receipt Date: 20090324
  Transmission Date: 20090719
  Serious: Yes (Hospitalization)
  Sender: FDA-Public Use
  Company Number: None

PATIENT
  Sex: Male
  Weight: 94.8 kg

DRUGS (2)
  1. CARBOPLATIN [Suspect]
     Dosage: 933 MG
     Dates: start: 20090224, end: 20090224
  2. TAXOL [Suspect]
     Dosage: 424 MG
     Dates: end: 20090224

REACTIONS (2)
  - RECTAL ABSCESS [None]
  - WOUND [None]
